FAERS Safety Report 5277606-3 (Version None)
Quarter: 2007Q1

REPORT INFORMATION
  Report Type: 
  Country: None (occurrence: None)
  Receive Date: 20070327
  Receipt Date: 20070315
  Transmission Date: 20070707
  Serious: Yes (Other)
  Sender: FDA-Public Use
  Company Number: US-SANOFI-SYNTHELABO-A03200701996

PATIENT
  Sex: Male

DRUGS (5)
  1. ADDERALL 10 [Concomitant]
     Dosage: UNK
     Route: 048
  2. WELLBUTRIN [Concomitant]
     Dosage: UNK
     Route: 048
  3. FLOMAX [Concomitant]
     Dosage: UNK
     Route: 048
  4. BENICAR [Concomitant]
     Dosage: UNK
     Route: 048
  5. AMBIEN [Suspect]
     Indication: INSOMNIA
     Route: 048
     Dates: start: 20050101

REACTIONS (6)
  - ABNORMAL BEHAVIOUR [None]
  - AMNESIA [None]
  - ARTHRALGIA [None]
  - LACERATION [None]
  - ROAD TRAFFIC ACCIDENT [None]
  - SLEEP WALKING [None]
